FAERS Safety Report 14035471 (Version 1)
Quarter: 2017Q4

REPORT INFORMATION
  Report Type: Spontaneous
  Country: FR (occurrence: FR)
  Receive Date: 20171003
  Receipt Date: 20171003
  Transmission Date: 20180321
  Serious: Yes (Congenital Anomaly)
  Sender: FDA-Public Use
  Company Number: FR-PFIZER INC-2017420356

PATIENT
  Sex: Female

DRUGS (4)
  1. XANAX [Suspect]
     Active Substance: ALPRAZOLAM
     Dosage: 1 DF, DAILY
     Route: 064
     Dates: start: 20160429, end: 20170125
  2. LAROXYL [Suspect]
     Active Substance: AMITRIPTYLINE HYDROCHLORIDE
     Dosage: 15 GTT, DAILY
     Route: 064
     Dates: start: 20160429, end: 20170125
  3. AERIUS /01009701/ [Suspect]
     Active Substance: EBASTINE
     Dosage: 1 DF, DAILY
     Route: 064
  4. CERIS [Suspect]
     Active Substance: TROSPIUM CHLORIDE
     Indication: DOUBLE URETER
     Dosage: 2 DF, DAILY
     Route: 064
     Dates: start: 20160429, end: 20170125

REACTIONS (3)
  - Maternal exposure during pregnancy [Unknown]
  - Polydactyly [Not Recovered/Not Resolved]
  - Foetal macrosomia [Unknown]
